FAERS Safety Report 7740684-3 (Version None)
Quarter: 2011Q3

REPORT INFORMATION
  Report Type: 
  Country: None (occurrence: None)
  Receive Date: 20110909
  Receipt Date: 20110830
  Transmission Date: 20111222
  Serious: Yes (Hospitalization)
  Sender: FDA-Public Use
  Company Number: US-BAYER-2011-035609

PATIENT
  Age: 24 Year
  Sex: Female

DRUGS (3)
  1. ADVIL LIQUI-GELS [Concomitant]
     Indication: HEADACHE
     Dosage: UNK UNK, PRN
     Route: 048
     Dates: start: 20000101, end: 20060101
  2. YAZ [Suspect]
     Indication: CONTRACEPTION
     Dosage: UNK
     Dates: start: 20060601, end: 20070101
  3. ADVIL LIQUI-GELS [Concomitant]
     Indication: PREMENSTRUAL SYNDROME

REACTIONS (12)
  - CHOLECYSTECTOMY [None]
  - PULMONARY EMBOLISM [None]
  - INJURY [None]
  - EMOTIONAL DISTRESS [None]
  - DEEP VEIN THROMBOSIS [None]
  - CHOLECYSTITIS CHRONIC [None]
  - BILIARY DYSKINESIA [None]
  - APPENDICECTOMY [None]
  - APPENDICITIS [None]
  - PAIN [None]
  - ANXIETY [None]
  - GENERAL PHYSICAL HEALTH DETERIORATION [None]
